FAERS Safety Report 9011549 (Version 6)
Quarter: 2014Q2

REPORT INFORMATION
  Report Type: Spontaneous
  Country: GB (occurrence: GB)
  Receive Date: 20130108
  Receipt Date: 20140508
  Transmission Date: 20141212
  Serious: Yes (Hospitalization)
  Sender: FDA-Public Use
  Company Number: US-MERCK-1301USA001493

PATIENT
  Age: 68 Year
  Sex: Female

DRUGS (8)
  1. SINGULAIR [Suspect]
     Indication: ASTHMA
     Dosage: 10 MG, QD
     Route: 048
  2. SINGULAIR [Suspect]
     Dosage: 10 MG, QD
     Route: 048
  3. THEOPHYLLINE [Suspect]
     Route: 065
  4. THEOPHYLLINE [Suspect]
     Route: 065
  5. PREDNISOLONE [Suspect]
     Indication: ASTHMA
     Dosage: 20 MG, QD
  6. PREDNISOLONE [Suspect]
     Dosage: 20 MG, QD
     Route: 065
  7. FLIXOTIDE [Suspect]
     Route: 065
  8. METFORMIN [Suspect]
     Route: 065

REACTIONS (8)
  - Peritonitis bacterial [Recovered/Resolved]
  - Abdominal pain [Unknown]
  - Purulence [Unknown]
  - Escherichia infection [Unknown]
  - Gram stain positive [Unknown]
  - Peritoneal abscess [Unknown]
  - White blood cell count increased [Unknown]
  - Pyrexia [Unknown]
